FAERS Safety Report 7469579 (Version 1)
Quarter: 2020Q3

REPORT INFORMATION
  Report Type: Report from Study
  Country: BR (occurrence: BR)
  Receive Date: 20100713
  Receipt Date: 20100713
  Transmission Date: 20201104
  Serious: Yes (Hospitalization)
  Sender: FDA-Public Use
  Company Number: BR-ROCHE-713719

PATIENT
  Age: 75 Year
  Sex: Female
  Weight: 64 kg

DRUGS (15)
  1. RITUXIMAB. [Suspect]
     Active Substance: RITUXIMAB
     Indication: RHEUMATOID ARTHRITIS
     Dosage: DOSE:1000MG/ML
     Route: 042
     Dates: end: 20100621
  2. FLUOXETINE [Concomitant]
     Active Substance: FLUOXETINE HYDROCHLORIDE
  3. FOLIC ACID. [Concomitant]
     Active Substance: FOLIC ACID
     Dosage: START DATE: 25 MG/WEEK, DOSE:5MG
     Dates: start: 2008
  4. TYLENOL [Concomitant]
     Active Substance: ACETAMINOPHEN
     Dosage: AT NIGHT
  5. DEFLAZACORT [Concomitant]
     Active Substance: DEFLAZACORT
  6. SYNTHROID [Concomitant]
     Active Substance: LEVOTHYROXINE SODIUM
  7. DAFLON (DIOSMIN/HESPERIDIN) [Concomitant]
     Active Substance: DIOSMIN\HESPERIDIN
     Dosage: TO IMPROVE BLOOD CIRCULATION ON LEGS
     Dates: start: 2008
  8. IBANDRONIC ACID. [Suspect]
     Active Substance: IBANDRONIC ACID
     Indication: OSTEOPOROSIS
     Dosage: START DATE: 2006/2007
     Route: 048
     Dates: start: 2007
  9. METHOTREXATE. [Concomitant]
     Active Substance: METHOTREXATE
     Indication: ARTHRITIS
     Dosage: 15 MG/SATURDAYS
     Dates: start: 2007
  10. RETINOL [Concomitant]
     Active Substance: RETINOL
     Dates: start: 2008
  11. CALCIUM PHOSPHATE [Concomitant]
     Active Substance: CALCIUM PHOSPHATE
  12. AVOCADO. [Concomitant]
     Active Substance: AVOCADO
  13. DEFLAZACORT [Concomitant]
     Active Substance: DEFLAZACORT
     Indication: ARTHRITIS
     Dates: start: 2008
  14. NOVALGINA [Concomitant]
     Active Substance: METAMIZOLE SODIUM
  15. FOLIC ACID. [Concomitant]
     Active Substance: FOLIC ACID

REACTIONS (5)
  - Dyspnoea [Recovered/Resolved]
  - Gastrointestinal infection [Unknown]
  - Gallbladder disorder [Recovered/Resolved]
  - Chest pain [Recovered/Resolved]
  - Drug ineffective [Unknown]

NARRATIVE: CASE EVENT DATE: 20080101
